FAERS Safety Report 16779716 (Version 1)
Quarter: 2019Q3

REPORT INFORMATION
  Report Type: Spontaneous
  Country: US (occurrence: US)
  Receive Date: 20190717
  Receipt Date: 20190717
  Transmission Date: 20191005
  Serious: No
  Sender: FDA-Public Use
  Company Number: None

PATIENT
  Age: 67 Year
  Sex: Female
  Weight: 90.72 kg

DRUGS (4)
  1. TAFINLAR [Suspect]
     Active Substance: DABRAFENIB MESYLATE
     Indication: PROSTATE CANCER
     Dosage: ?          OTHER FREQUENCY:EVERY12HRSASDIR ;?
     Route: 048
  2. TAFINLAR [Suspect]
     Active Substance: DABRAFENIB MESYLATE
     Indication: BONE CANCER
     Dosage: ?          OTHER FREQUENCY:EVERY12HRSASDIR ;?
     Route: 048
  3. TAFINLAR [Suspect]
     Active Substance: DABRAFENIB MESYLATE
     Indication: MALIGNANT MELANOMA
     Dosage: ?          OTHER FREQUENCY:EVERY12HRSASDIR ;?
     Route: 048
  4. TAFINLAR [Suspect]
     Active Substance: DABRAFENIB MESYLATE
     Indication: THROMBOSIS
     Dosage: ?          OTHER FREQUENCY:EVERY12HRSASDIR ;?
     Route: 048

REACTIONS (3)
  - Condition aggravated [None]
  - Cataract [None]
  - Visual impairment [None]
